FAERS Safety Report 11884295 (Version 1)
Quarter: 2016Q1

REPORT INFORMATION
  Report Type: Spontaneous
  Country: US (occurrence: US)
  Receive Date: 20160103
  Receipt Date: 20160103
  Transmission Date: 20160526
  Serious: Yes (Other)
  Sender: FDA-Public Use
  Company Number: US-JNJFOC-20151216061

PATIENT
  Age: 80 Year
  Sex: Female

DRUGS (4)
  1. INVOKANA [Suspect]
     Active Substance: CANAGLIFLOZIN
     Indication: WEIGHT
     Route: 048
     Dates: start: 2015, end: 2015
  2. INVOKANA [Suspect]
     Active Substance: CANAGLIFLOZIN
     Indication: WEIGHT
     Route: 048
  3. INVOKANA [Suspect]
     Active Substance: CANAGLIFLOZIN
     Indication: GLYCOSYLATED HAEMOGLOBIN INCREASED
     Route: 048
  4. INVOKANA [Suspect]
     Active Substance: CANAGLIFLOZIN
     Indication: GLYCOSYLATED HAEMOGLOBIN INCREASED
     Route: 048
     Dates: start: 2015, end: 2015

REACTIONS (4)
  - Wrist fracture [Recovered/Resolved]
  - Inappropriate schedule of drug administration [Unknown]
  - Product use issue [Unknown]
  - Off label use [Unknown]
